FAERS Safety Report 17448748 (Version 3)
Quarter: 2020Q4

REPORT INFORMATION
  Report Type: Spontaneous
  Country: US (occurrence: US)
  Receive Date: 20200224
  Receipt Date: 20201104
  Transmission Date: 20210113
  Serious: Yes (Hospitalization)
  Sender: FDA-Public Use
  Company Number: US-TEVA-2020-US-1187539

PATIENT
  Age: 39 Year
  Sex: Female
  Weight: 54.4 kg

DRUGS (7)
  1. DEPAKOTE [Concomitant]
     Active Substance: DIVALPROEX SODIUM
     Dosage: 500 MG, DELAYED RELEASE, Q 8 HOURS
     Route: 065
  2. INVEGA [Concomitant]
     Active Substance: PALIPERIDONE
     Dosage: 117 MG IM MONTHLY
     Route: 030
  3. ALBUTEROL. [Concomitant]
     Active Substance: ALBUTEROL
     Dosage: INHALER, PRN
     Route: 065
  4. CLOZAPINE TEVA [Suspect]
     Active Substance: CLOZAPINE
     Indication: MANIA
     Dosage: 200 MG HS
     Route: 065
  5. INVEGA [Concomitant]
     Active Substance: PALIPERIDONE
     Route: 065
  6. CLOZAPINE TEVA [Suspect]
     Active Substance: CLOZAPINE
     Indication: BIPOLAR DISORDER
     Route: 065
  7. CLOZAPINE TEVA [Suspect]
     Active Substance: CLOZAPINE
     Indication: PSYCHOTIC BEHAVIOUR

REACTIONS (5)
  - Panic reaction [Unknown]
  - Mood swings [Recovering/Resolving]
  - Anxiety [Recovering/Resolving]
  - Psychotic disorder [Recovering/Resolving]
  - Mania [Unknown]

NARRATIVE: CASE EVENT DATE: 20200212
